FAERS Safety Report 8309288-8 (Version None)
Quarter: 2012Q2

REPORT INFORMATION
  Report Type: 
  Country: None (occurrence: None)
  Receive Date: 20120424
  Receipt Date: 20120412
  Transmission Date: 20120825
  Serious: Yes (Other)
  Sender: FDA-Public Use
  Company Number: NL-AMGEN-NLDSP2012016862

PATIENT
  Age: 65 Year
  Sex: Female

DRUGS (1)
  1. ENBREL [Suspect]
     Indication: PSORIATIC ARTHROPATHY
     Dosage: 50 MG, WEEKLY
     Dates: start: 20100401

REACTIONS (6)
  - EMOTIONAL DISTRESS [None]
  - MELANOCYTIC NAEVUS [None]
  - DRY SKIN [None]
  - INJECTION SITE PAIN [None]
  - WEIGHT DECREASED [None]
  - RESPIRATORY TRACT INFECTION [None]
